FAERS Safety Report 5595934-9 (Version None)
Quarter: 2008Q1

REPORT INFORMATION
  Report Type: 
  Country: None (occurrence: None)
  Receive Date: 20080118
  Receipt Date: 20080108
  Transmission Date: 20080703
  Serious: Yes (Death, Hospitalization)
  Sender: FDA-Public Use
  Company Number: JP-SANOFI-SYNTHELABO-A01200713683

PATIENT
  Sex: Male
  Weight: 60 kg

DRUGS (8)
  1. ASPIRIN [Suspect]
     Indication: CAROTID ARTERY STENOSIS
     Route: 048
     Dates: start: 20071105, end: 20071203
  2. ARTIST [Concomitant]
     Indication: MYOCARDIAL INFARCTION
     Route: 048
     Dates: start: 20071105, end: 20071129
  3. WARFARIN SODIUM [Concomitant]
     Indication: ATRIAL FIBRILLATION
     Route: 048
     Dates: start: 20071105, end: 20071129
  4. SUNRYTHM [Concomitant]
     Indication: ATRIAL FIBRILLATION
     Route: 048
     Dates: start: 20071105, end: 20071129
  5. PLAVIX [Suspect]
     Indication: CAROTID ARTERY STENOSIS
     Route: 048
     Dates: start: 20070131, end: 20071009
  6. PLAVIX [Suspect]
     Route: 048
     Dates: start: 20071105, end: 20071203
  7. LOXONIN [Suspect]
     Indication: PYREXIA
     Route: 048
     Dates: start: 20071130, end: 20071203
  8. OMEPRAL [Suspect]
     Indication: GASTRIC ULCER HAEMORRHAGE
     Route: 065
     Dates: start: 20071009, end: 20071203

REACTIONS (2)
  - GASTRIC ULCER HAEMORRHAGE [None]
  - TOXIC EPIDERMAL NECROLYSIS [None]
